FAERS Safety Report 19450240 (Version 1)
Quarter: 2021Q2

REPORT INFORMATION
  Report Type: Spontaneous
  Country: US (occurrence: US)
  Receive Date: 20210622
  Receipt Date: 20210622
  Transmission Date: 20210717
  Serious: No
  Sender: FDA-Public Use
  Company Number: US-CELGENEUS-USA-20210603636

PATIENT
  Age: 48 Year
  Sex: Female

DRUGS (2)
  1. INREBIC [Suspect]
     Active Substance: FEDRATINIB HYDROCHLORIDE
     Dosage: 400 MILLIGRAM
     Route: 048
     Dates: start: 20210609
  2. INREBIC [Suspect]
     Active Substance: FEDRATINIB HYDROCHLORIDE
     Indication: MYELOFIBROSIS
     Dosage: 400 MILLIGRAM
     Route: 048
     Dates: start: 2021, end: 20210518

REACTIONS (1)
  - Full blood count decreased [Recovered/Resolved]

NARRATIVE: CASE EVENT DATE: 20210518
